FAERS Safety Report 8861905 (Version 1)
Quarter: 2012Q4

REPORT INFORMATION
  Report Type: 
  Country: JP (occurrence: JP)
  Receive Date: 20121025
  Receipt Date: 20121025
  Transmission Date: 20130627
  Serious: Yes (Other)
  Sender: FDA-Public Use
  Company Number: JP-009507513-1210JPN010465

PATIENT
  Age: 49 Year
  Sex: Female

DRUGS (16)
  1. FOSAMAC TABLETS 35MG [Suspect]
     Indication: OSTEOPOROSIS PROPHYLAXIS
     Dosage: 35 mg, qw
     Route: 048
     Dates: end: 20120808
  2. PREDNISOLONE [Concomitant]
     Route: 048
  3. METHOTREXATE [Concomitant]
     Route: 048
  4. OMEPRAZON [Concomitant]
     Route: 048
  5. LOXONIN [Concomitant]
     Route: 048
  6. METHYCOBAL [Concomitant]
     Route: 048
  7. PRORENAL [Concomitant]
     Route: 048
  8. MAGMITT [Concomitant]
     Route: 048
  9. LIPITOR [Concomitant]
     Route: 048
  10. LENDORMIN [Concomitant]
     Route: 048
  11. BAKTAR [Concomitant]
     Route: 048
  12. LYRICA [Concomitant]
     Route: 048
  13. VOLTAREN [Concomitant]
     Route: 054
  14. SAXIZON [Concomitant]
     Route: 051
  15. POLARAMINE TABLETS [Concomitant]
  16. ACTEMRA [Concomitant]
     Route: 041

REACTIONS (1)
  - Atypical femur fracture [Not Recovered/Not Resolved]
